FAERS Safety Report 7309413-1 (Version None)
Quarter: 2011Q1

REPORT INFORMATION
  Report Type: 
  Country: None (occurrence: None)
  Receive Date: 20110223
  Receipt Date: 20110215
  Transmission Date: 20110831
  Serious: Yes (Death)
  Sender: FDA-Public Use
  Company Number: US-GILEAD-2010-0032996

PATIENT
  Age: 85 Year
  Sex: Female
  Weight: 49.94 kg

DRUGS (9)
  1. GABAPENTIN [Concomitant]
  2. WARFARIN [Concomitant]
  3. LOVASTATIN [Concomitant]
  4. METFORMIN [Concomitant]
  5. METOPROLOL [Concomitant]
  6. OMEPRAZOLE [Concomitant]
  7. LETAIRIS [Suspect]
     Indication: PULMONARY HYPERTENSION
     Route: 048
     Dates: start: 20101011
  8. POTASSIUM CHLORIDE [Concomitant]
  9. LASIX [Concomitant]

REACTIONS (3)
  - PULMONARY HYPERTENSION [None]
  - MALAISE [None]
  - DYSPNOEA [None]
